FAERS Safety Report 5374712-X (Version None)
Quarter: 2007Q2

REPORT INFORMATION
  Report Type: 
  Country: None (occurrence: None)
  Receive Date: 20070629
  Receipt Date: 20070620
  Transmission Date: 20071010
  Serious: Yes (Other)
  Sender: FDA-Public Use
  Company Number: US-JNJFOC-20070605159

PATIENT
  Sex: Male

DRUGS (2)
  1. INVEGA [Suspect]
     Indication: DRUG USE FOR UNKNOWN INDICATION
     Route: 048
  2. RISPERDAL [Suspect]
     Indication: UNEVALUABLE EVENT
     Route: 065

REACTIONS (1)
  - CONVULSION [None]
